FAERS Safety Report 8415168-X (Version None)
Quarter: 2012Q2

REPORT INFORMATION
  Report Type: 
  Country: None (occurrence: None)
  Receive Date: 20120530
  Receipt Date: 20120525
  Transmission Date: 20120825
  Serious: Yes (Hospitalization, Other)
  Sender: FDA-Public Use
  Company Number: ADR-2012-00207

PATIENT
  Age: 20 Year
  Sex: Female

DRUGS (2)
  1. BACLOFEN [Suspect]
     Indication: MUSCLE SPASTICITY
  2. BACLOFEN [Suspect]
     Indication: CEREBRAL PALSY

REACTIONS (7)
  - POST LUMBAR PUNCTURE SYNDROME [None]
  - MEDICAL DEVICE COMPLICATION [None]
  - PYREXIA [None]
  - DIARRHOEA [None]
  - FATIGUE [None]
  - DRUG EFFECT DECREASED [None]
  - MUSCLE SPASMS [None]
